FAERS Safety Report 17448876 (Version 6)
Quarter: 2022Q1

REPORT INFORMATION
  Report Type: Report from Study
  Country: FR (occurrence: FR)
  Receive Date: 20200224
  Receipt Date: 20220313
  Transmission Date: 20220424
  Serious: Yes (Hospitalization)
  Sender: FDA-Public Use
  Company Number: FR-BRISTOL-MYERS SQUIBB COMPANY-BMS-2020-014633

PATIENT
  Age: 55 Year
  Sex: Male
  Weight: 56 kg

DRUGS (6)
  1. NIVOLUMAB [Suspect]
     Active Substance: NIVOLUMAB
     Indication: Squamous cell carcinoma of head and neck
     Dosage: 240 MILLIGRAM
     Route: 065
     Dates: start: 20200109
  2. NIVOLUMAB [Suspect]
     Active Substance: NIVOLUMAB
     Dosage: 360 MILLIGRAM
     Route: 065
     Dates: start: 20200120
  3. NIVOLUMAB [Suspect]
     Active Substance: NIVOLUMAB
     Dosage: 360 MILLIGRAM
     Route: 065
     Dates: start: 20200210
  4. CISPLATIN [Suspect]
     Active Substance: CISPLATIN
     Indication: Squamous cell carcinoma of head and neck
     Dosage: 170 MILLIGRAM
     Route: 065
     Dates: start: 20200120
  5. CISPLATIN [Suspect]
     Active Substance: CISPLATIN
     Dosage: 170 MILLIGRAM
     Route: 065
     Dates: start: 20200213
  6. CISPLATIN [Suspect]
     Active Substance: CISPLATIN
     Dosage: 170 MILLIGRAM (100 MG/M2)
     Route: 065
     Dates: start: 20200210

REACTIONS (3)
  - Diarrhoea [Recovered/Resolved]
  - Platelet count decreased [Not Recovered/Not Resolved]
  - Pyrexia [Recovered/Resolved]

NARRATIVE: CASE EVENT DATE: 20200210
